FAERS Safety Report 21753422 (Version 1)
Quarter: 2022Q4

REPORT INFORMATION
  Report Type: Spontaneous
  Country: US (occurrence: US)
  Receive Date: 20221220
  Receipt Date: 20221220
  Transmission Date: 20230113
  Serious: No
  Sender: FDA-Public Use
  Company Number: US-BRISTOL-MYERS SQUIBB COMPANY-2022-139020

PATIENT
  Age: 71 Year
  Sex: Female
  Weight: 70.76 kg

DRUGS (1)
  1. CAMZYOS [Suspect]
     Active Substance: MAVACAMTEN
     Indication: Hypertrophic cardiomyopathy
     Dosage: FREQUENCY: DAILY
     Route: 048
     Dates: start: 202210

REACTIONS (2)
  - Product temperature excursion issue [Unknown]
  - Tooth disorder [Unknown]

NARRATIVE: CASE EVENT DATE: 20221115
